FAERS Safety Report 4433784-7 (Version None)
Quarter: 2004Q3

REPORT INFORMATION
  Report Type: 
  Country: None (occurrence: None)
  Receive Date: 20040824
  Receipt Date: 20040812
  Transmission Date: 20050211
  Serious: Yes (Other)
  Sender: FDA-Public Use
  Company Number: NSADSS2001028912

PATIENT
  Age: 51 Year
  Sex: Female
  Weight: 53.5244 kg

DRUGS (3)
  1. REMICADE [Suspect]
     Indication: RHEUMATOID ARTHRITIS
     Dosage: 1 IN 1 DAY, INTRAVENOUS DRIP
     Route: 041
     Dates: start: 20010723, end: 20010723
  2. PLAQUENIL [Concomitant]
  3. METHOTREXATE SODIUM [Concomitant]

REACTIONS (5)
  - ANTIBODY TEST POSITIVE [None]
  - BLINDNESS UNILATERAL [None]
  - HYPOAESTHESIA [None]
  - HYPOAESTHESIA ORAL [None]
  - MULTIPLE SCLEROSIS [None]
